FAERS Safety Report 5465974-9 (Version None)
Quarter: 2007Q3

REPORT INFORMATION
  Report Type: 
  Country: None (occurrence: None)
  Receive Date: 20070924
  Receipt Date: 20070917
  Transmission Date: 20080115
  Serious: Yes (Hospitalization)
  Sender: FDA-Public Use
  Company Number: US-ROXANE LABORATORIES, INC-2007-BP-21184RO

PATIENT
  Age: 54 Year
  Sex: Male

DRUGS (4)
  1. LORAZEPAM [Suspect]
     Indication: ALCOHOL WITHDRAWAL SYNDROME
     Route: 042
  2. THIAMINE [Concomitant]
     Indication: ALCOHOL WITHDRAWAL SYNDROME
  3. VITAMIN CAP [Concomitant]
     Indication: ALCOHOL WITHDRAWAL SYNDROME
  4. FOMEPIZOLE [Concomitant]
     Indication: DRUG TOXICITY

REACTIONS (5)
  - BLOOD OSMOLARITY INCREASED [None]
  - DRUG TOXICITY [None]
  - HAEMODIALYSIS [None]
  - METABOLIC ACIDOSIS [None]
  - RENAL INJURY [None]
